FAERS Safety Report 23258341 (Version 1)
Quarter: 2023Q4

REPORT INFORMATION
  Report Type: Report from Study
  Country: US (occurrence: US)
  Receive Date: 20231204
  Receipt Date: 20231204
  Transmission Date: 20240109
  Serious: Yes (Hospitalization)
  Sender: FDA-Public Use
  Company Number: US-MYLANLABS-2023M1127590

PATIENT
  Age: 3 Decade

DRUGS (1)
  1. HEPARIN [Suspect]
     Active Substance: HEPARIN SODIUM
     Indication: Thrombosis prophylaxis
     Dosage: UNK UNK, TID, 5000 UNITS THRICE DAILY
     Route: 058

REACTIONS (2)
  - Heparin-induced thrombocytopenia [Recovered/Resolved]
  - Delayed ischaemic neurological deficit [Unknown]
